FAERS Safety Report 4984521-9 (Version None)
Quarter: 2006Q2

REPORT INFORMATION
  Report Type: 
  Country: None (occurrence: None)
  Receive Date: 20060427
  Receipt Date: 20060417
  Transmission Date: 20061013
  Serious: Yes (Other)
  Sender: FDA-Public Use
  Company Number: US-JNJFOC-20060403968

PATIENT
  Sex: Female
  Weight: 86.18 kg

DRUGS (4)
  1. TOPAMAX [Suspect]
     Route: 048
  2. TOPAMAX [Suspect]
     Route: 048
  3. TOPAMAX [Suspect]
     Indication: MIGRAINE PROPHYLAXIS
     Route: 048
  4. RHINACORT [Concomitant]
     Indication: SEASONAL ALLERGY

REACTIONS (2)
  - MYOPIA [None]
  - RETINAL TEAR [None]
